FAERS Safety Report 25368399 (Version 1)
Quarter: 2025Q2

REPORT INFORMATION
  Report Type: Spontaneous
  Country: US (occurrence: None)
  Receive Date: 20250527
  Receipt Date: 20250527
  Transmission Date: 20250717
  Serious: Yes (Other)
  Sender: FDA-CTU
  Company Number: None

PATIENT
  Age: 32 Year
  Sex: Female
  Weight: 62.55 kg

DRUGS (9)
  1. LUMRYZ [Suspect]
     Active Substance: SODIUM OXYBATE
     Indication: Narcolepsy
     Dosage: FREQUENCY : AT BEDTIME;?
     Route: 048
     Dates: start: 20250514, end: 20250525
  2. DESVENLAFAXINE [Concomitant]
     Active Substance: DESVENLAFAXINE
  3. WAKIX [Concomitant]
     Active Substance: PITOLISANT HYDROCHLORIDE
  4. ARMODAFINIL [Concomitant]
     Active Substance: ARMODAFINIL
  5. SEASONIQUE (ORAL CONTRACEPTIVE) [Concomitant]
  6. MAGNESIUM GLYCINATE [Concomitant]
     Active Substance: MAGNESIUM GLYCINATE
  7. VITAMINS [Concomitant]
     Active Substance: VITAMINS
  8. ALLEGRA [Concomitant]
     Active Substance: FEXOFENADINE HYDROCHLORIDE
  9. FLONASE [Concomitant]
     Active Substance: FLUTICASONE PROPIONATE

REACTIONS (16)
  - Enuresis [None]
  - Night sweats [None]
  - Hallucination [None]
  - Dizziness [None]
  - Nausea [None]
  - Vision blurred [None]
  - Depressed mood [None]
  - Tearfulness [None]
  - Disturbance in attention [None]
  - Thinking abnormal [None]
  - Decreased appetite [None]
  - Weight decreased [None]
  - Feeling guilty [None]
  - Chest discomfort [None]
  - Palpitations [None]
  - Suicidal ideation [None]

NARRATIVE: CASE EVENT DATE: 20250522
